FAERS Safety Report 23074471 (Version 1)
Quarter: 2023Q4

REPORT INFORMATION
  Report Type: Spontaneous
  Country: US (occurrence: None)
  Receive Date: 20231016
  Receipt Date: 20231016
  Transmission Date: 20240109
  Serious: No
  Sender: FDA-Public Use
  Company Number: None

PATIENT
  Age: 45 Year
  Sex: Female

DRUGS (1)
  1. APREMILAST [Suspect]
     Active Substance: APREMILAST
     Indication: Lichen planopilaris
     Dosage: FREQUENCY : TWICE A DAY;?
     Route: 048
     Dates: start: 202302

REACTIONS (1)
  - Pneumonia [None]
